FAERS Safety Report 17097008 (Version 1)
Quarter: 2019Q4

REPORT INFORMATION
  Report Type: Report from Study
  Country: US (occurrence: US)
  Receive Date: 20191202
  Receipt Date: 20191202
  Transmission Date: 20200122
  Serious: Yes (Death, Other)
  Sender: FDA-Public Use
  Company Number: US-ROCHE-2444894

PATIENT
  Age: 73 Year
  Sex: Female

DRUGS (3)
  1. RITUXAN [Suspect]
     Active Substance: RITUXIMAB
     Indication: HEPATIC CIRRHOSIS
     Dosage: ONGOING:NO
     Route: 041
  2. RITUXAN [Suspect]
     Active Substance: RITUXIMAB
     Indication: AUTOIMMUNE HEPATITIS
     Dosage: INFUSE 1000 MG INTRAVENOUSLY EVERY 2 WEEKS FOR 2
     Route: 041
  3. RITUXAN [Suspect]
     Active Substance: RITUXIMAB
     Indication: ASCITES

REACTIONS (3)
  - Off label use [Unknown]
  - Intentional product use issue [Unknown]
  - Death [Fatal]

NARRATIVE: CASE EVENT DATE: 20191003
